FAERS Safety Report 8136738-2 (Version None)
Quarter: 2012Q1

REPORT INFORMATION
  Report Type: 
  Country: None (occurrence: None)
  Receive Date: 20120214
  Receipt Date: 20120209
  Transmission Date: 20120608
  Serious: Yes (Congenital Anomaly, Other)
  Sender: FDA-Public Use
  Company Number: US-PFIZER INC-2012036837

PATIENT
  Sex: Male

DRUGS (1)
  1. ZOLOFT [Suspect]
     Indication: DEPRESSION
     Dosage: UNK
     Route: 064
     Dates: start: 20030401

REACTIONS (6)
  - MATERNAL EXPOSURE TIMING UNSPECIFIED [None]
  - DILATATION VENTRICULAR [None]
  - CONGENITAL PULMONARY HYPERTENSION [None]
  - RIGHT ATRIAL DILATATION [None]
  - ATRIAL SEPTAL DEFECT [None]
  - CARDIAC FAILURE [None]
